FAERS Safety Report 16612373 (Version 1)
Quarter: 2019Q3

REPORT INFORMATION
  Report Type: Spontaneous
  Country: US (occurrence: US)
  Receive Date: 20190722
  Receipt Date: 20190722
  Transmission Date: 20191004
  Serious: No
  Sender: FDA-Public Use
  Company Number: US-FOUNDATIONCONSUMERHC-2019-US-009951

PATIENT
  Age: 34 Year
  Sex: Female
  Weight: 62.14 kg

DRUGS (3)
  1. AFTERA [Suspect]
     Active Substance: LEVONORGESTREL
     Indication: POST COITAL CONTRACEPTION
     Dosage: 1.5 MG X 1 DOSE
     Route: 048
     Dates: start: 20190426, end: 20190426
  2. WOMEN^S MULTIVITAMIN [Concomitant]
  3. PREWORKOUT [Concomitant]

REACTIONS (1)
  - Dysmenorrhoea [Not Recovered/Not Resolved]
